FAERS Safety Report 20821978 (Version 1)
Quarter: 2022Q2

REPORT INFORMATION
  Report Type: Spontaneous
  Country: US (occurrence: None)
  Receive Date: 20220512
  Receipt Date: 20220512
  Transmission Date: 20220720
  Serious: Yes (Death)
  Sender: FDA-Public Use
  Company Number: None

PATIENT
  Age: 57 Year
  Sex: Male

DRUGS (2)
  1. EVEROLIMUS [Suspect]
     Active Substance: EVEROLIMUS
     Indication: Gastrooesophageal cancer
     Dosage: FREQUENCY : DAILY; X14 DAY?
     Route: 048
     Dates: start: 20220325
  2. EVEROLIMUS [Suspect]
     Active Substance: EVEROLIMUS
     Indication: Gastrooesophageal cancer
     Dosage: FREQUENCY : DAILY;?
     Route: 048
     Dates: start: 20220413

REACTIONS (1)
  - Death [None]

NARRATIVE: CASE EVENT DATE: 20220425
